FAERS Safety Report 4562116-9 (Version None)
Quarter: 2005Q1

REPORT INFORMATION
  Report Type: 
  Country: None (occurrence: None)
  Receive Date: 20050124
  Receipt Date: 20050111
  Transmission Date: 20050727
  Serious: Yes (Other)
  Sender: FDA-Public Use
  Company Number: 2005014355

PATIENT
  Sex: Female
  Weight: 77.1115 kg

DRUGS (11)
  1. CELEBREX [Suspect]
     Indication: ARTHRITIS
     Dosage: 200 MG (200 MG, 1 IN 1 D), ORAL
     Route: 048
     Dates: start: 19980101, end: 20040501
  2. CELEBREX [Suspect]
     Indication: BACK PAIN
     Dosage: 200 MG (200 MG, 1 IN 1 D), ORAL
     Route: 048
     Dates: start: 19980101, end: 20040501
  3. CONJUGATED ESTROGENS [Concomitant]
  4. THEOPHYLLINE [Concomitant]
  5. MONTELUKAST (MONTELUKAST) [Concomitant]
  6. TRAMADOL HCL [Concomitant]
  7. AMLODIPINE BESYLATE [Concomitant]
  8. COMBIVENT [Concomitant]
  9. PANTOPRAZOLE (PANTOPRAZOLE) [Concomitant]
  10. AMITRIPTYLINE HCL [Concomitant]
  11. ANTIHISTAMINES (ANTIHISTAMINES) [Concomitant]

REACTIONS (9)
  - BACK DISORDER [None]
  - CARDIOMEGALY [None]
  - NERVE COMPRESSION [None]
  - OEDEMA PERIPHERAL [None]
  - PAIN [None]
  - SENSORY DISTURBANCE [None]
  - SPINAL COLUMN STENOSIS [None]
  - VENTRICULAR EXTRASYSTOLES [None]
  - VIRAL INFECTION [None]
